FAERS Safety Report 9021986 (Version 5)
Quarter: 2013Q4

REPORT INFORMATION
  Report Type: Report from Study
  Country: US (occurrence: US)
  Receive Date: 20130118
  Receipt Date: 20131206
  Transmission Date: 20140711
  Serious: Yes (Death)
  Sender: FDA-Public Use
  Company Number: PHEH2013US001558

PATIENT
  Sex: Male
  Weight: 65.5 kg

DRUGS (3)
  1. TOBI [Suspect]
     Indication: CYSTIC FIBROSIS
     Dosage: 170 MG, BID
     Dates: start: 20100428, end: 20100428
  2. TOBI [Suspect]
     Dosage: 300 MG, BID (FOR 28 DAYS, SKIP 28 DAYS)
     Dates: start: 20120425
  3. PULMOZYME [Concomitant]
     Dosage: UNK
     Route: 065

REACTIONS (2)
  - Pulmonary function test decreased [Fatal]
  - Respiratory failure [Fatal]
